FAERS Safety Report 16272229 (Version 1)
Quarter: 2019Q2

REPORT INFORMATION
  Report Type: Report from Study
  Country: CN (occurrence: CN)
  Receive Date: 20190506
  Receipt Date: 20190506
  Transmission Date: 20190711
  Serious: Yes (Hospitalization)
  Sender: FDA-Public Use
  Company Number: CN-AMGEN-CHNCT2019070170

PATIENT
  Age: 73 Year
  Sex: Female

DRUGS (16)
  1. CINACALCET HCL [Suspect]
     Active Substance: CINACALCET HYDROCHLORIDE
     Dosage: 75 MILLIGRAM, QD
     Route: 065
     Dates: start: 20181010, end: 20190225
  2. RECOMBINANT HUMAN ERYTHROPOIETIN [Concomitant]
     Active Substance: ERYTHROPOIETIN
     Indication: NEPHROGENIC ANAEMIA
     Dosage: 3000 INTERNATIONAL UNIT, 2 TIMES/WK
     Route: 042
  3. LOW MOLECULAR WEIGHT HEPARIN SODIUM [Concomitant]
     Active Substance: HEPARIN SODIUM
     Indication: HAEMODIALYSIS
     Dosage: 4250 INTERNATIONAL UNIT, 3 TIMES/WK
  4. LIMONENE [Concomitant]
     Active Substance: LIMONENE, (+/-)-
     Indication: COUGH
     Dosage: 0.3 GRAM, TID
     Route: 048
  5. LACTULOSE. [Concomitant]
     Active Substance: LACTULOSE
     Indication: CONSTIPATION
     Dosage: 15 MILLILITER, QD
     Route: 048
  6. METOPROLOL. [Concomitant]
     Active Substance: METOPROLOL
     Indication: HYPERTENSION
     Dosage: 11.875 MILLIGRAM, QD
     Route: 048
  7. CINACALCET HCL [Suspect]
     Active Substance: CINACALCET HYDROCHLORIDE
     Indication: HYPERPARATHYROIDISM SECONDARY
     Dosage: 25 MILLIGRAM, QD
     Route: 065
     Dates: start: 20180709, end: 20180805
  8. HEART [Concomitant]
     Indication: CORONARY ARTERY DISEASE
     Dosage: 2 DOSAGE FORM, TID
     Route: 048
  9. CALCITRIOL. [Concomitant]
     Active Substance: CALCITRIOL
     Indication: HYPERPARATHYROIDISM SECONDARY
     Dosage: 0.25 MICROGRAM, QD
     Route: 048
  10. PANTOPRAZOLE SODIUM. [Concomitant]
     Active Substance: PANTOPRAZOLE SODIUM
     Indication: DUODENAL ULCER
     Dosage: 20 MILLIGRAM, QD
     Route: 048
  11. HYDROTALCITE [Concomitant]
     Active Substance: HYDROTALCITE
     Indication: DUODENAL ULCER
     Dosage: 0.5 GRAM, TID
     Route: 048
  12. CINACALCET HCL [Suspect]
     Active Substance: CINACALCET HYDROCHLORIDE
     Dosage: 50 MILLIGRAM, QD
     Route: 065
     Dates: start: 20190226
  13. FOLIC ACID. [Concomitant]
     Active Substance: FOLIC ACID
     Indication: NEPHROGENIC ANAEMIA
     Dosage: 1-2TABLET, QD
     Route: 048
  14. VITAMIN B [Concomitant]
     Active Substance: VITAMIN B
     Indication: NEPHROGENIC ANAEMIA
     Dosage: 1 DOSAGE FORM, BID
     Route: 048
  15. CINACALCET HCL [Suspect]
     Active Substance: CINACALCET HYDROCHLORIDE
     Dosage: 50 MILLIGRAM, QD
     Route: 065
     Dates: start: 20180806, end: 20181009
  16. VITAMIN C + ROSEHIP [Concomitant]
     Indication: HAEMODIALYSIS COMPLICATION
     Dosage: 2 DOSAGE FORM, QD
     Route: 048

REACTIONS (1)
  - Rib fracture [Unknown]

NARRATIVE: CASE EVENT DATE: 20190411
